FAERS Safety Report 9031599 (Version 3)
Quarter: 2013Q1

REPORT INFORMATION
  Report Type: Report from Study
  Country: DE (occurrence: DE)
  Receive Date: 20130124
  Receipt Date: 20130125
  Transmission Date: 20140127
  Serious: Yes (Hospitalization)
  Sender: FDA-Public Use
  Company Number: DE-ROCHE-1181796

PATIENT
  Age: 53 Year
  Sex: Male
  Weight: 86.8 kg

DRUGS (6)
  1. BEVACIZUMAB [Suspect]
     Indication: BRAIN NEOPLASM MALIGNANT
     Dosage: DATE OF LAST DOSE PRIOR TO SAE: 16/JAN/2013
     Route: 042
     Dates: start: 20130102
  2. TEMOZOLOMIDE [Suspect]
     Indication: BRAIN NEOPLASM MALIGNANT
     Dosage: DATE OF LAST DOSE PRIOR TO SAE: 06/JAN/2013
     Route: 048
     Dates: start: 20130102
  3. RAMIPRIL [Concomitant]
     Indication: HYPERTENSION
     Route: 048
  4. LAMOTRIGINE [Concomitant]
     Route: 048
  5. VIMPAT [Concomitant]
     Indication: CONVULSION
     Route: 048
  6. IODIDE SALTS [Concomitant]
     Indication: IODINE DEFICIENCY
     Route: 048

REACTIONS (4)
  - Dyspnoea [Recovered/Resolved]
  - Rash [Recovered/Resolved]
  - Bronchospasm [Recovered/Resolved]
  - Hypersensitivity [Recovered/Resolved]
